FAERS Safety Report 17880223 (Version 8)
Quarter: 2021Q2

REPORT INFORMATION
  Report Type: Spontaneous
  Country: JP (occurrence: JP)
  Receive Date: 20200610
  Receipt Date: 20210604
  Transmission Date: 20210717
  Serious: Yes (Life-Threatening, Hospitalization, Other)
  Sender: FDA-Public Use
  Company Number: JP-AMGEN-JPNSP2020089973

PATIENT
  Age: 72 Year
  Sex: Male
  Weight: 67.5 kg

DRUGS (21)
  1. PARSABIV [Suspect]
     Active Substance: ETELCALCETIDE HYDROCHLORIDE
     Dosage: 5 MILLIGRAM, 3 TIMES/WK
     Route: 010
     Dates: start: 20200911, end: 20201014
  2. FOSRENOL [Concomitant]
     Active Substance: LANTHANUM CARBONATE
     Dosage: 750 MG, EVERYDAY
     Route: 048
     Dates: end: 20200306
  3. DARBEPOETIN ALFA [Concomitant]
     Active Substance: DARBEPOETIN ALFA
     Dosage: 10 MICROGRAM, QWK
     Route: 042
     Dates: start: 20210129, end: 20210205
  4. MAXACALCITOL [Concomitant]
     Active Substance: MAXACALCITOL
     Dosage: 10 UG, Q84H
     Route: 042
     Dates: start: 20201102, end: 20201209
  5. DARBEPOETIN ALFA [Concomitant]
     Active Substance: DARBEPOETIN ALFA
     Dosage: 5 MICROGRAM, QWK
     Route: 042
     Dates: start: 20210212, end: 20210319
  6. RIONA [Concomitant]
     Active Substance: FERRIC CITRATE ANHYDROUS
     Dosage: 750 MG, EVERYDAY
     Route: 065
     Dates: end: 20200710
  7. DARBEPOETIN ALFA [Concomitant]
     Active Substance: DARBEPOETIN ALFA
     Dosage: 40 MICROGRAM, QWK
     Route: 042
     Dates: start: 20201225, end: 20210108
  8. MAXACALCITOL [Concomitant]
     Active Substance: MAXACALCITOL
     Indication: HYPERPARATHYROIDISM SECONDARY
     Dosage: 10 UG, Q84H
     Route: 042
     Dates: start: 20190612, end: 20200720
  9. MAXACALCITOL [Concomitant]
     Active Substance: MAXACALCITOL
     Dosage: 5 UG, Q84H
     Route: 042
     Dates: start: 20201211
  10. PARSABIV [Suspect]
     Active Substance: ETELCALCETIDE HYDROCHLORIDE
     Indication: HYPERPARATHYROIDISM SECONDARY
     Dosage: 5 MILLIGRAM, 3 TIMES/WK
     Route: 010
     Dates: start: 20191115, end: 20200720
  11. DARBEPOETIN ALFA [Concomitant]
     Active Substance: DARBEPOETIN ALFA
     Dosage: 15 MICROGRAM, QWK
     Route: 042
     Dates: start: 20200124, end: 20200904
  12. DARBEPOETIN ALFA [Concomitant]
     Active Substance: DARBEPOETIN ALFA
     Dosage: 90 MICROGRAM, QWK
     Route: 042
     Dates: start: 20200911, end: 20201204
  13. DARBEPOETIN ALFA [Concomitant]
     Active Substance: DARBEPOETIN ALFA
     Dosage: 60 MICROGRAM, QWK
     Route: 042
     Dates: start: 20201211, end: 20201218
  14. DARBEPOETIN ALFA [Concomitant]
     Active Substance: DARBEPOETIN ALFA
     Dosage: 20 MICROGRAM, QWK
     Route: 042
     Dates: start: 20210115, end: 20210122
  15. HEPARIN [Concomitant]
     Active Substance: HEPARIN SODIUM
     Dosage: UNK
     Route: 065
     Dates: start: 20200226
  16. FOSRENOL [Concomitant]
     Active Substance: LANTHANUM CARBONATE
     Dosage: 750 MG, EVERYDAY
     Route: 048
     Dates: start: 20210303
  17. PARSABIV [Suspect]
     Active Substance: ETELCALCETIDE HYDROCHLORIDE
     Dosage: 5 MILLIGRAM, 3 TIMES/WK
     Route: 010
     Dates: start: 20201102
  18. DARBEPOETIN ALFA [Concomitant]
     Active Substance: DARBEPOETIN ALFA
     Dosage: 10 MICROGRAM, QWK
     Route: 042
     Dates: end: 20190906
  19. DARBEPOETIN ALFA [Concomitant]
     Active Substance: DARBEPOETIN ALFA
     Dosage: 20 MICROGRAM, QWK
     Route: 042
     Dates: start: 20190913, end: 20200117
  20. DARBEPOETIN ALFA [Concomitant]
     Active Substance: DARBEPOETIN ALFA
     Dosage: 10 MICROGRAM, QWK
     Route: 042
     Dates: start: 20210326
  21. MAXACALCITOL [Concomitant]
     Active Substance: MAXACALCITOL
     Dosage: 10 UG, Q84H
     Route: 042
     Dates: start: 20200911, end: 20201012

REACTIONS (7)
  - Cardiac failure [Recovering/Resolving]
  - Wound infection [Recovering/Resolving]
  - Cardiac failure [Recovering/Resolving]
  - Shunt stenosis [Recovered/Resolved]
  - Shunt stenosis [Recovered/Resolved]
  - Shunt occlusion [Unknown]
  - Cardiac failure [Not Recovered/Not Resolved]

NARRATIVE: CASE EVENT DATE: 20200522
